FAERS Safety Report 23883413 (Version 1)
Quarter: 2024Q2

REPORT INFORMATION
  Report Type: Spontaneous
  Country: CN (occurrence: CN)
  Receive Date: 20240522
  Receipt Date: 20240522
  Transmission Date: 20240716
  Serious: Yes (Other)
  Sender: FDA-Public Use
  Company Number: CN-QILU PHARMACEUTICAL (HAINAN) CO., LTD.-QLH-000082-2024

PATIENT
  Age: 71 Year
  Sex: Male

DRUGS (7)
  1. PEMETREXED DISODIUM [Suspect]
     Active Substance: PEMETREXED DISODIUM
     Indication: Lung adenocarcinoma stage II
     Dosage: 30 MG, ADMINISTERED 1-2 TIMES PER WEEK, 2-3 TIMES PER COURSE AND REPEATED ONCE EVERY 2-3 MONTHS.
     Route: 037
     Dates: start: 20211125, end: 202211
  2. PEMETREXED DISODIUM [Suspect]
     Active Substance: PEMETREXED DISODIUM
     Indication: EGFR gene mutation
  3. PEMETREXED DISODIUM [Suspect]
     Active Substance: PEMETREXED DISODIUM
     Indication: Metastases to meninges
  4. OSIMERTINIB [Suspect]
     Active Substance: OSIMERTINIB
     Indication: Lung adenocarcinoma stage II
     Dosage: 80 MG PER DAY
     Route: 065
     Dates: start: 202105
  5. OSIMERTINIB [Suspect]
     Active Substance: OSIMERTINIB
     Indication: EGFR gene mutation
     Dosage: 160 MG PER DAY
     Route: 065
     Dates: start: 202109
  6. OSIMERTINIB [Suspect]
     Active Substance: OSIMERTINIB
     Indication: Metastases to meninges
  7. VITAMINS [Concomitant]
     Active Substance: VITAMINS
     Indication: Product used for unknown indication
     Dosage: 1 TABLET DAILY
     Route: 065
     Dates: start: 2021

REACTIONS (6)
  - Leukopenia [Unknown]
  - Thrombocytopenia [Unknown]
  - Rash [Unknown]
  - Fatigue [Unknown]
  - Off label use [Unknown]
  - Incorrect route of product administration [Unknown]
